FAERS Safety Report 17616169 (Version 1)
Quarter: 2020Q2

REPORT INFORMATION
  Report Type: Spontaneous
  Country: ES (occurrence: ES)
  Receive Date: 20200402
  Receipt Date: 20200402
  Transmission Date: 20200713
  Serious: Yes (Hospitalization)
  Sender: FDA-Public Use
  Company Number: ES-TEVA-2020-ES-1215371

PATIENT
  Age: 46 Year
  Sex: Female

DRUGS (18)
  1. RISPERIDONA (7201A) [Suspect]
     Active Substance: RISPERIDONE
     Indication: PSYCHOTIC DISORDER
     Dosage: 2 MG
     Route: 048
     Dates: start: 20190604, end: 20190709
  2. MONTELUKAST 10 MG COMPRIMIDO [Concomitant]
     Active Substance: MONTELUKAST SODIUM
  3. PRISTIQ EXTENDED-RELEASE [Concomitant]
     Active Substance: DESVENLAFAXINE SUCCINATE
  4. ATORVASTATINA 10 MG COMPRIMIDO [Concomitant]
  5. ZOLPIDEM 10 MG COMPRIMIDO [Concomitant]
  6. CLOBAZAM 20 MG COMPRIMIDO [Concomitant]
  7. EUTIROX 175 MICROGRAMOS COMPRIMIDOS , 100 COMPRIMIDOS [Concomitant]
  8. SYMBICORT TURBUHALER 160 MICROGRAMOS/4,5 MICROGRAMOS/INHALACION  POLVO [Concomitant]
  9. ESOMEPRAZOL 40 MG COMPRIMIDO [Concomitant]
  10. ESCITALOPRAM 20 MG COMPRIMIDO [Concomitant]
  11. TARGIN 10 MG/5 MG COMPRIMIDOS DE LIBERACION PROLONGADA , 56 COMPRIMIDO [Concomitant]
  12. FERROGLICINA SULFATO (1549SU) [Concomitant]
  13. FLURAZEPAM (1577A) [Concomitant]
  14. DIAZEPAM (730A) [Concomitant]
     Active Substance: DIAZEPAM
  15. TRAZODONA 100 MG COMPRIMIDO [Concomitant]
  16. MOMETASONA (2418A) [Concomitant]
  17. MEDROXIPROGESTERONA 150 MG INYECTABLE 1 ML [Concomitant]
  18. ZONEGRAN 100 MG CAPSULAS DURAS, 56 CAPSULAS [Concomitant]

REACTIONS (5)
  - Resting tremor [Recovered/Resolved]
  - Somnolence [Recovered/Resolved]
  - Parkinsonism [Recovered/Resolved]
  - Gait disturbance [Recovered/Resolved]
  - Salivary hypersecretion [Recovered/Resolved]

NARRATIVE: CASE EVENT DATE: 20190709
